FAERS Safety Report 4631249-0 (Version None)
Quarter: 2005Q2

REPORT INFORMATION
  Report Type: 
  Country: None (occurrence: None)
  Receive Date: 20050406
  Receipt Date: 20050327
  Transmission Date: 20051028
  Serious: Yes (Other)
  Sender: FDA-Public Use
  Company Number: US-2005-004381

PATIENT
  Age: 88 Year
  Sex: Female
  Weight: 42.2 kg

DRUGS (7)
  1. MAGNEVIST [Suspect]
     Indication: NUCLEAR MAGNETIC RESONANCE IMAGING BRAIN
     Dosage: 10 ML, 1 DOSE, INTRAVENOUS
     Route: 042
     Dates: start: 20020323, end: 20050323
  2. DIGOXIN [Concomitant]
  3. TOPROL-XL [Concomitant]
  4. ASPIRIN [Concomitant]
  5. MULTIVITAMIN ^LAPPE^ (VITAMINS NOS) [Concomitant]
  6. COLACE (DOCUSATE SODIUM) [Concomitant]
  7. MAGNESIUM OXIDE (MAGNESIUM OXIDE) [Concomitant]

REACTIONS (15)
  - ANXIETY [None]
  - ATRIAL FIBRILLATION [None]
  - CHOKING SENSATION [None]
  - CONDITION AGGRAVATED [None]
  - COUGH [None]
  - CRYING [None]
  - FATIGUE [None]
  - FEELING COLD [None]
  - HYPERSOMNIA [None]
  - INJECTION SITE PAIN [None]
  - LISTLESS [None]
  - NAUSEA [None]
  - PAIN [None]
  - REFUSAL OF TREATMENT BY RELATIVE [None]
  - SNEEZING [None]
